FAERS Safety Report 5904490-4 (Version None)
Quarter: 2008Q3

REPORT INFORMATION
  Report Type: 
  Country: None (occurrence: None)
  Receive Date: 20080909
  Receipt Date: 20071030
  Transmission Date: 20090109
  Serious: Yes (Death, Hospitalization)
  Sender: FDA-Public Use
  Company Number: 163-20785-07100803

PATIENT
  Age: 65 Year
  Sex: Female

DRUGS (12)
  1. THALOMID [Suspect]
     Indication: MALIGNANT MELANOMA
     Dosage: 100 MG, 1 IN 1 D, ORAL
     Route: 048
     Dates: start: 20070914, end: 20070930
  2. TEMOZOLOMIDE (TEMOZOLOMIDE) (CAPSULES) [Concomitant]
  3. ALLOPURINOL [Concomitant]
  4. LORAZEPAM [Concomitant]
  5. MAGNESIUM HYDROXIDE (MAGNESIUM HYDROXIDE) (7.75 PERCENT, SUSPENSION) [Concomitant]
  6. MULTIVITAMIN [Concomitant]
  7. OMEPRAZOLE [Concomitant]
  8. OXYCODONE HYDROCHLORIDE (OXYCODONE HYDROCHLORIDE) (TABLETS) [Concomitant]
  9. POLYETHYLENE GLYCOL (MACROGOL) (POWDER) [Concomitant]
  10. PROCHLORPERAZINE MALEATE (PROCHLORPERAZINE MALEATE) [Concomitant]
  11. TRAVOPROST (TRAVOPROST) (0.004 PERCENT, EYE DROPS) [Concomitant]
  12. VITAMIN E (TOCOPHEROL) (CAPSULES) [Concomitant]

REACTIONS (10)
  - BLOOD BILIRUBIN INCREASED [None]
  - DEHYDRATION [None]
  - FAILURE TO THRIVE [None]
  - HYPOPHAGIA [None]
  - JAUNDICE CHOLESTATIC [None]
  - LIVER FUNCTION TEST ABNORMAL [None]
  - NAUSEA [None]
  - NEOPLASM PROGRESSION [None]
  - THROMBOCYTOPENIA [None]
  - VOMITING [None]
